FAERS Safety Report 9686481 (Version 1)
Quarter: 2013Q4

REPORT INFORMATION
  Report Type: Spontaneous
  Country: KR (occurrence: None)
  Receive Date: 20131108
  Receipt Date: 20131108
  Transmission Date: 20140711
  Serious: Yes (Life-Threatening, Other)
  Sender: FDA-Public Use
  Company Number: KR-20130013

PATIENT
  Sex: Female

DRUGS (1)
  1. DOTAREM [Suspect]
     Indication: NUCLEAR MAGNETIC RESONANCE IMAGING SPINAL
     Dosage: 13 ML, 1 IN 1 D
     Route: 042
     Dates: start: 20131006, end: 20131006

REACTIONS (2)
  - Muscle spasms [None]
  - Dyspnoea [None]
